FAERS Safety Report 25928065 (Version 1)
Quarter: 2025Q4

REPORT INFORMATION
  Report Type: Spontaneous
  Country: US (occurrence: US)
  Receive Date: 20251016
  Receipt Date: 20251016
  Transmission Date: 20260119
  Serious: No
  Sender: TOLMAR
  Company Number: US-Tolmar-TLM-2025-07427

PATIENT
  Sex: Female

DRUGS (2)
  1. ELIGARD [Suspect]
     Active Substance: LEUPROLIDE ACETATE
     Indication: Gender dysphoria
     Dosage: SERIAL: 1618493777060.?GTIN: 00362935461500.?EXPIRATION DATE: DEC-2026; DEC-2026; 31-DEC-2026
     Route: 065
  2. DEVICE [Suspect]
     Active Substance: DEVICE
     Indication: Gender dysphoria
     Dosage: SERIAL: 1618493777060.?GTIN: 00362935461500.?EXPIRATION DATE: DEC-2026; DEC-2026; 31-DEC-2026

REACTIONS (4)
  - Intercepted product preparation error [Unknown]
  - Product preparation error [Unknown]
  - Off label use [Unknown]
  - Device occlusion [Unknown]
